FAERS Safety Report 5371863-0 (Version None)
Quarter: 2007Q2

REPORT INFORMATION
  Report Type: 
  Country: None (occurrence: None)
  Receive Date: 20070625
  Receipt Date: 20070615
  Transmission Date: 20071010
  Serious: Yes (Other)
  Sender: FDA-Public Use
  Company Number: 2007AL002441

PATIENT
  Age: 44 Year
  Sex: Male

DRUGS (1)
  1. DICLOFENAC [Suspect]
     Indication: GOUT
     Dosage: 75 MG;BID;PO
     Route: 048

REACTIONS (6)
  - ANAPHYLACTIC REACTION [None]
  - BLOOD FIBRINOGEN INCREASED [None]
  - BLOOD PRESSURE DECREASED [None]
  - FIBRIN D DIMER INCREASED [None]
  - LABORATORY TEST ABNORMAL [None]
  - RESPIRATORY RATE INCREASED [None]
